FAERS Safety Report 19117028 (Version 5)
Quarter: 2022Q4

REPORT INFORMATION
  Report Type: Spontaneous
  Country: US (occurrence: US)
  Receive Date: 20210409
  Receipt Date: 20221027
  Transmission Date: 20230112
  Serious: No
  Sender: FDA-Public Use
  Company Number: US-PFIZER INC-2021351622

PATIENT
  Age: 68 Year
  Sex: Female

DRUGS (1)
  1. XELJANZ XR [Suspect]
     Active Substance: TOFACITINIB CITRATE
     Dosage: 11 MG, DAILY (TAKE 1 TABLET BY MOUTH EVERY DAY/PO QD, 30-DAY SUPPLY)
     Route: 048

REACTIONS (5)
  - Product dose omission issue [Unknown]
  - Feeling abnormal [Unknown]
  - Confusional state [Unknown]
  - Arthritis [Unknown]
  - Pain [Unknown]
